FAERS Safety Report 4842693-0 (Version None)
Quarter: 2005Q4

REPORT INFORMATION
  Report Type: 
  Country: None (occurrence: None)
  Receive Date: 20051129
  Receipt Date: 20051116
  Transmission Date: 20060501
  Serious: Yes (Other)
  Sender: FDA-Public Use
  Company Number: 2005143294

PATIENT
  Age: 65 Year
  Sex: Male
  Weight: 93.441 kg

DRUGS (13)
  1. ZMAX [Suspect]
     Indication: SINUS DISORDER
     Dosage: 1 IN 1 DAY ORAL
     Route: 048
     Dates: start: 20051010, end: 20051001
  2. VALSARTAN [Concomitant]
  3. ACETYLASLICYLIC ACID(ACETYLSALICYLIC ACID) [Concomitant]
  4. TAMSULOSIN HYDROCHLORIDE(TAMSULOSIN HYDROCHLORIDE) [Concomitant]
  5. PLAVIX [Concomitant]
  6. ASTELIN [Concomitant]
  7. CLONIDINE [Concomitant]
  8. OXYCODONE (OXYCODONE) [Concomitant]
  9. AMBIEN [Concomitant]
  10. COLCHICUM JTL LIQ [Concomitant]
  11. NIASPAN [Concomitant]
  12. TERAZOSIN (TERAZOSIN) [Concomitant]
  13. PROSCAR [Concomitant]

REACTIONS (5)
  - DRUG EFFECT DECREASED [None]
  - FEELING ABNORMAL [None]
  - MOVEMENT DISORDER [None]
  - RENAL FUNCTION TEST ABNORMAL [None]
  - SENSORY LOSS [None]
